FAERS Safety Report 9915628 (Version 1)
Quarter: 2014Q1

REPORT INFORMATION
  Report Type: Spontaneous
  Country: NO (occurrence: None)
  Receive Date: 20140218
  Receipt Date: 20140218
  Transmission Date: 20141002
  Serious: Yes (Life-Threatening)
  Sender: FDA-Public Use
  Company Number: FK201400398

PATIENT
  Age: 87 Year
  Sex: Female

DRUGS (2)
  1. PACLITAXEL [Suspect]
     Indication: OVARIAN CANCER
     Dosage: INTRAVENOUS (NOT OTHERWISE)
     Route: 042
     Dates: start: 20140114, end: 20140114
  2. AVASTIN (BEVACIZUMAB) (BEVACIZUMAB) [Concomitant]

REACTIONS (3)
  - Dyspnoea [None]
  - Loss of consciousness [None]
  - Hypersensitivity [None]
